FAERS Safety Report 8387800-0 (Version None)
Quarter: 2012Q2

REPORT INFORMATION
  Report Type: 
  Country: None (occurrence: None)
  Receive Date: 20120525
  Receipt Date: 20120521
  Transmission Date: 20120825
  Serious: Yes (Other)
  Sender: FDA-Public Use
  Company Number: DE-GLAXOSMITHKLINE-D0075511A

PATIENT
  Sex: Female

DRUGS (1)
  1. CEFUROXIME AXETIL [Suspect]
     Route: 065

REACTIONS (2)
  - RESUSCITATION [None]
  - ANAPHYLACTIC SHOCK [None]
